FAERS Safety Report 12858198 (Version 1)
Quarter: 2016Q4

REPORT INFORMATION
  Report Type: Spontaneous
  Country: US (occurrence: US)
  Receive Date: 20161018
  Receipt Date: 20161018
  Transmission Date: 20170207
  Serious: No
  Sender: FDA-Public Use
  Company Number: US-SA-2016SA118414

PATIENT
  Age: 59 Year
  Sex: Female
  Weight: 61.3 kg

DRUGS (6)
  1. RISEDRONATE [Concomitant]
     Active Substance: RISEDRONATE SODIUM
  2. DICLOFENAC [Concomitant]
     Active Substance: DICLOFENAC
  3. FLUOXETINE [Concomitant]
     Active Substance: FLUOXETINE HYDROCHLORIDE
  4. LEMTRADA [Suspect]
     Active Substance: ALEMTUZUMAB
     Indication: MULTIPLE SCLEROSIS
     Route: 042
     Dates: start: 20160620, end: 20160622
  5. PROPRANOLOL [Concomitant]
     Active Substance: PROPRANOLOL\PROPRANOLOL HYDROCHLORIDE
  6. GABAPENTIN. [Concomitant]
     Active Substance: GABAPENTIN

REACTIONS (1)
  - Decubitus ulcer [Not Recovered/Not Resolved]
